FAERS Safety Report 5918000-9 (Version None)
Quarter: 2008Q4

REPORT INFORMATION
  Report Type: 
  Country: None (occurrence: None)
  Receive Date: 20081014
  Receipt Date: 20081006
  Transmission Date: 20090506
  Serious: Yes (Other)
  Sender: FDA-Public Use
  Company Number: US-PFIZER INC-2008080055

PATIENT
  Age: 65 Year

DRUGS (2)
  1. NELFINAVIR MESILATE [Suspect]
     Indication: HIV INFECTION
  2. CISPLATIN [Suspect]
     Indication: SQUAMOUS CELL CARCINOMA

REACTIONS (3)
  - DIARRHOEA [None]
  - URINARY RETENTION [None]
  - URINARY TRACT INFECTION [None]
